FAERS Safety Report 5421298-7 (Version None)
Quarter: 2007Q3

REPORT INFORMATION
  Report Type: 
  Country: None (occurrence: None)
  Receive Date: 20070817
  Receipt Date: 20070723
  Transmission Date: 20080115
  Serious: Yes (Death, Hospitalization, Other)
  Sender: FDA-Public Use
  Company Number: 2007US001935

PATIENT
  Age: 59 Year
  Sex: Male

DRUGS (6)
  1. PROGRAF [Suspect]
     Indication: STEM CELL TRANSPLANT
  2. MYCOPHENOLATE MOFETIL [Concomitant]
  3. PREDNISONE TAB [Concomitant]
  4. COTRIM [Concomitant]
  5. ACYCLOVIR [Concomitant]
  6. VORICONAZOLE (VORICONAZOLE) [Concomitant]

REACTIONS (8)
  - ACUTE GRAFT VERSUS HOST DISEASE IN INTESTINE [None]
  - ACUTE GRAFT VERSUS HOST DISEASE IN SKIN [None]
  - DISEASE PROGRESSION [None]
  - FUNGAL INFECTION [None]
  - LUNG NEOPLASM [None]
  - MANTLE CELL LYMPHOMA [None]
  - SKIN LESION [None]
  - SYSTEMIC MYCOSIS [None]
